FAERS Safety Report 21683093 (Version 1)
Quarter: 2022Q4

REPORT INFORMATION
  Report Type: Report from Study
  Country: US (occurrence: US)
  Receive Date: 20221205
  Receipt Date: 20221205
  Transmission Date: 20230113
  Serious: Yes (Other)
  Sender: FDA-Public Use
  Company Number: US-GSKCCFUS-Case-01567657_AE-88607

PATIENT

DRUGS (1)
  1. BELIMUMAB [Suspect]
     Active Substance: BELIMUMAB
     Indication: Systemic lupus erythematosus
     Dosage: UNK, Z MONTHLY

REACTIONS (4)
  - Systemic lupus erythematosus [Unknown]
  - Skin ulcer [Not Recovered/Not Resolved]
  - Coronavirus infection [Recovered/Resolved]
  - Drug ineffective [Unknown]
